FAERS Safety Report 8607445-4 (Version None)
Quarter: 2012Q3

REPORT INFORMATION
  Report Type: 
  Country: None (occurrence: None)
  Receive Date: 20120809
  Receipt Date: 20120809
  Transmission Date: 20120928
  Serious: Yes (Life-Threatening, Hospitalization)
  Sender: FDA-Public Use
  Company Number: None

PATIENT
  Age: 65 Year
  Sex: Male

DRUGS (1)
  1. METHOTREXATE [Suspect]
     Indication: POLYMYOSITIS
     Dosage: 22.5 MG	QWEEK  PO
     Route: 048
     Dates: start: 20040406, end: 20120517

REACTIONS (4)
  - ACUTE MYOCARDIAL INFARCTION [None]
  - PANCYTOPENIA [None]
  - NEOPLASM MALIGNANT [None]
  - TOXICITY TO VARIOUS AGENTS [None]
